FAERS Safety Report 5051429-2 (Version None)
Quarter: 2006Q3

REPORT INFORMATION
  Report Type: 
  Country: None (occurrence: None)
  Receive Date: 20060714
  Receipt Date: 20060704
  Transmission Date: 20061208
  Serious: Yes (Hospitalization)
  Sender: FDA-Public Use
  Company Number: PHBS2006TH09911

PATIENT
  Age: 66 Year
  Sex: Female

DRUGS (10)
  1. TRILEPTAL [Suspect]
     Indication: NEURALGIA
     Dosage: 150 MG, BID
     Route: 048
     Dates: start: 20060621, end: 20060624
  2. TRILEPTAL [Suspect]
     Dosage: 300 MG, BID
     Route: 048
     Dates: start: 20060625, end: 20060702
  3. CALCIUM GLUCONATE [Concomitant]
     Route: 065
  4. N.A [Concomitant]
     Route: 065
  5. CEFTRIAXONE [Concomitant]
     Route: 065
  6. GLIBENCLAMIDE [Concomitant]
     Route: 065
  7. METFORMIN [Concomitant]
     Route: 065
  8. PARIET [Concomitant]
     Route: 065
  9. CLOXACILLIN SODIUM [Concomitant]
     Route: 065
  10. PARAFOR-FORTE [Concomitant]
     Route: 065

REACTIONS (7)
  - ABASIA [None]
  - ANAEMIA [None]
  - BLOOD SODIUM DECREASED [None]
  - FATIGUE [None]
  - HAEMATOCRIT DECREASED [None]
  - HYPONATRAEMIA [None]
  - SOMNOLENCE [None]
